FAERS Safety Report 9303733 (Version 1)
Quarter: 2013Q1

REPORT INFORMATION
  Report Type: Spontaneous
  Country: JP (occurrence: None)
  Receive Date: 20130124
  Receipt Date: 20130124
  Transmission Date: 20140127
  Serious: Yes (Hospitalization, Other)
  Sender: FDA-Public Use
  Company Number: 2008US-18075

PATIENT
  Age: 68 Year
  Sex: Female

DRUGS (4)
  1. MINOCYCLINE HYDROCHLORIDE (MINOCYCLINE) UNKNOWN [Suspect]
     Indication: PHARYNGITIS
     Dates: start: 20030806, end: 20030809
  2. MINOCYCLINE HYDROCHLORIDE (MINOCYCLINE) UNKNOWN [Suspect]
     Indication: PYREXIA
     Dates: start: 20030806, end: 20030809
  3. CARBAMAZEPINE (CARBAMAZEPINE) UNKNOWN [Suspect]
     Indication: TRIGEMINAL NEURALGIA
  4. ZONISAMIDE (ZONISAMIDE) UNKNOWN [Suspect]
     Indication: TRIGEMINAL NEURALGIA

REACTIONS (5)
  - Drug reaction with eosinophilia and systemic symptoms [None]
  - Pemphigoid [None]
  - Gamma-glutamyltransferase [None]
  - Alanine aminotransferase increased [None]
  - Roseolovirus test positive [None]
